FAERS Safety Report 8862147 (Version 1)
Quarter: 2012Q4

REPORT INFORMATION
  Report Type: 
  Country: US (occurrence: US)
  Receive Date: 20121026
  Receipt Date: 20121026
  Transmission Date: 20130627
  Serious: Yes (Other)
  Sender: FDA-Public Use
  Company Number: US-PFIZER INC-2012267199

PATIENT
  Age: 62 Year
  Sex: Female
  Weight: 66.67 kg

DRUGS (3)
  1. XANAX [Suspect]
     Indication: INSOMNIA
     Dosage: 1 mg, 4x/day
     Route: 048
     Dates: start: 1987
  2. XANAX [Suspect]
     Indication: IRRITABLE BOWEL SYNDROME
     Dosage: 1.5 mg, 1x/day
     Route: 048
  3. DURAGESIC [Concomitant]
     Dosage: UNK

REACTIONS (3)
  - Angiopathy [Unknown]
  - Amnesia [Unknown]
  - Incorrect dose administered [Unknown]
